FAERS Safety Report 18252755 (Version 17)
Quarter: 2021Q1

REPORT INFORMATION
  Report Type: Report from Study
  Country: TR (occurrence: TR)
  Receive Date: 20200910
  Receipt Date: 20210218
  Transmission Date: 20210419
  Serious: Yes (Death, Life-Threatening, Hospitalization)
  Sender: FDA-Public Use
  Company Number: TR-EISAI MEDICAL RESEARCH-EC-2020-080225

PATIENT
  Age: 76 Year
  Sex: Female
  Weight: 78 kg

DRUGS (16)
  1. LENVATINIB [Suspect]
     Active Substance: LENVATINIB
     Route: 048
     Dates: start: 20200904, end: 20200904
  2. PEMBROLIZUMAB. [Suspect]
     Active Substance: PEMBROLIZUMAB
     Indication: ENDOMETRIAL CANCER
     Route: 041
     Dates: start: 20200128, end: 20200805
  3. HYZAAR FORT [Concomitant]
     Dates: start: 200401, end: 20200903
  4. ONDAREN [Concomitant]
     Route: 041
     Dates: start: 20200904, end: 20200904
  5. KARVEZIDE [Concomitant]
     Active Substance: HYDROCHLOROTHIAZIDE\IRBESARTAN
     Dates: start: 20200331
  6. LEVOTIRON [Concomitant]
     Active Substance: LEVOTHYROXINE SODIUM
     Dates: start: 20200515
  7. LENVATINIB [Suspect]
     Active Substance: LENVATINIB
     Indication: ENDOMETRIAL CANCER
     Dosage: STARTING DOSE AT 20 MG, FLUCTUATED DOSES
     Route: 048
     Dates: start: 20200128, end: 20200903
  8. JEVITY [Concomitant]
     Active Substance: DIETARY SUPPLEMENT
     Dates: start: 20200904, end: 20200904
  9. GLIFOR [Concomitant]
     Active Substance: METFORMIN HYDROCHLORIDE
     Dates: start: 201505
  10. CARDURA [Concomitant]
     Active Substance: DOXAZOSIN MESYLATE
     Dates: start: 20200603, end: 20200903
  11. PEMBROLIZUMAB. [Suspect]
     Active Substance: PEMBROLIZUMAB
     Route: 041
     Dates: start: 20200828, end: 20200828
  12. PAROL [Concomitant]
     Active Substance: ACETAMINOPHEN
     Dates: start: 20200504, end: 20200903
  13. BENIPIN [Concomitant]
     Active Substance: BENIDIPINE HYDROCHLORIDE
     Dates: start: 20200603, end: 20200903
  14. DESAL [Concomitant]
     Dates: start: 20200904, end: 20200904
  15. ULCURAN [Concomitant]
     Active Substance: RANITIDINE HYDROCHLORIDE
     Dates: start: 20200904, end: 20200904
  16. NORVASC [Concomitant]
     Active Substance: AMLODIPINE BESYLATE
     Dates: start: 20200904, end: 20200904

REACTIONS (1)
  - Cerebrovascular accident [Not Recovered/Not Resolved]

NARRATIVE: CASE EVENT DATE: 20200904
